FAERS Safety Report 24672885 (Version 3)
Quarter: 2025Q1

REPORT INFORMATION
  Report Type: Spontaneous
  Country: US (occurrence: US)
  Receive Date: 20241128
  Receipt Date: 20250306
  Transmission Date: 20250409
  Serious: No
  Sender: ELI LILLY AND COMPANY
  Company Number: US-ELI_LILLY_AND_COMPANY-US202411018328

PATIENT
  Age: 93 Year
  Sex: Male

DRUGS (4)
  1. BASAGLAR [Suspect]
     Active Substance: INSULIN GLARGINE
     Route: 065
  2. BASAGLAR [Suspect]
     Active Substance: INSULIN GLARGINE
     Route: 065
  3. BASAGLAR [Suspect]
     Active Substance: INSULIN GLARGINE
     Route: 065
  4. REPAGLINIDE [Concomitant]
     Active Substance: REPAGLINIDE
     Indication: Product used for unknown indication
     Dosage: 1 MG, QID

REACTIONS (8)
  - Blood glucose increased [Unknown]
  - Product dose omission issue [Unknown]
  - Gait disturbance [Recovered/Resolved]
  - Weight decreased [Recovered/Resolved]
  - Product dose omission issue [Unknown]
  - Blood glucose increased [Recovered/Resolved]
  - Dry eye [Recovering/Resolving]
  - Asthenia [Recovering/Resolving]
